FAERS Safety Report 6623908-5 (Version None)
Quarter: 2010Q1

REPORT INFORMATION
  Report Type: 
  Country: None (occurrence: None)
  Receive Date: 20100310
  Receipt Date: 20100223
  Transmission Date: 20100710
  Serious: No
  Sender: FDA-Public Use
  Company Number: US-ROXANE LABORATORIES, INC.-2010-RO-00193RO

PATIENT
  Sex: Male

DRUGS (1)
  1. AMLODIPINE [Suspect]
     Indication: CARDIAC DISORDER
     Dosage: 5 MG
     Route: 048

REACTIONS (1)
  - HEADACHE [None]
